FAERS Safety Report 5337617-6 (Version None)
Quarter: 2007Q3

REPORT INFORMATION
  Report Type: 
  Country: None (occurrence: None)
  Receive Date: 20070524
  Receipt Date: 20070511
  Transmission Date: 20080115
  Serious: Yes (Other)
  Sender: FDA-Public Use
  Company Number: FABR-11927

PATIENT
  Age: 48 Year
  Sex: Female
  Weight: 70 kg

DRUGS (12)
  1. FABRAZYME [Suspect]
     Indication: FABRY'S DISEASE
     Dates: start: 20040915
  2. ZETIA [Concomitant]
  3. HYDROCHLOROTHIAZIDE [Concomitant]
  4. SERTRALINE [Concomitant]
  5. DIGITEK [Concomitant]
  6. LIPITOR [Concomitant]
  7. LISINOPRIL AND HYDROCHLOROTHIAZIDE [Concomitant]
  8. PREVACID [Concomitant]
  9. DEPAKOTE [Concomitant]
  10. FLUTICAONE [Concomitant]
  11. CLONAZEPAM [Concomitant]
  12. ASPIRIN [Concomitant]

REACTIONS (2)
  - GAMMOPATHY [None]
  - MULTIPLE SCLEROSIS [None]
